FAERS Safety Report 10057080 (Version 1)
Quarter: 2014Q2

REPORT INFORMATION
  Report Type: Spontaneous
  Country: FR (occurrence: FR)
  Receive Date: 20140403
  Receipt Date: 20140403
  Transmission Date: 20141212
  Serious: Yes (Life-Threatening, Hospitalization, Other)
  Sender: FDA-Public Use
  Company Number: FR-PFIZER INC-2014090985

PATIENT
  Age: 61 Year
  Sex: Male

DRUGS (4)
  1. TAHOR [Suspect]
     Dosage: 10 MG, DAILY
     Route: 048
     Dates: start: 20031223
  2. STAGID [Suspect]
     Indication: DIABETES MELLITUS
     Dosage: UNK
     Route: 048
     Dates: start: 2007
  3. STAGID [Suspect]
     Dosage: 700 MG, 3X/DAY
     Route: 048
     Dates: end: 201307
  4. STAGID [Suspect]
     Dosage: 1000 MG, 3X/DAY
     Route: 048
     Dates: start: 201307, end: 20131231

REACTIONS (6)
  - Dyspepsia [Unknown]
  - Abdominal pain [Not Recovered/Not Resolved]
  - Gastrointestinal hypomotility [Unknown]
  - Oesophageal varices haemorrhage [Unknown]
  - Hepatic cirrhosis [Unknown]
  - Liver function test abnormal [Not Recovered/Not Resolved]
